FAERS Safety Report 7680849-2 (Version None)
Quarter: 2011Q3

REPORT INFORMATION
  Report Type: 
  Country: None (occurrence: None)
  Receive Date: 20110812
  Receipt Date: 20110811
  Transmission Date: 20111222
  Serious: Yes (Hospitalization)
  Sender: FDA-Public Use
  Company Number: US-MERCK-1107USA01274

PATIENT
  Sex: Male

DRUGS (2)
  1. SIMVASTATIN [Suspect]
     Route: 048
     Dates: end: 20110101
  2. ZOCOR [Suspect]
     Route: 048
     Dates: end: 20110101

REACTIONS (1)
  - MUSCLE INJURY [None]
